FAERS Safety Report 6489517-6 (Version None)
Quarter: 2009Q4

REPORT INFORMATION
  Report Type: 
  Country: None (occurrence: None)
  Receive Date: 20091210
  Receipt Date: 20091126
  Transmission Date: 20100525
  Serious: Yes (Hospitalization)
  Sender: FDA-Public Use
  Company Number: SE-GENENTECH-295572

PATIENT
  Age: 47 Year
  Sex: Male

DRUGS (1)
  1. RITUXIMAB [Suspect]
     Indication: CHRONIC LYMPHOCYTIC LEUKAEMIA
     Dosage: UNK
     Route: 042
     Dates: start: 20091126, end: 20091126

REACTIONS (4)
  - BLOOD PRESSURE DECREASED [None]
  - COLD SWEAT [None]
  - NAUSEA [None]
  - RHONCHI [None]
